FAERS Safety Report 21096500 (Version 1)
Quarter: 2022Q3

REPORT INFORMATION
  Report Type: Spontaneous
  Country: US (occurrence: US)
  Receive Date: 20220718
  Receipt Date: 20220718
  Transmission Date: 20221027
  Serious: Yes (Other)
  Sender: FDA-Public Use
  Company Number: US-JNJFOC-20220723334

PATIENT

DRUGS (1)
  1. EVARREST [Suspect]
     Active Substance: FIBRINOGEN HUMAN\THROMBIN HUMAN
     Indication: Product used for unknown indication
     Route: 061

REACTIONS (2)
  - Scan abnormal [Unknown]
  - Absorbable device issue [Unknown]
